FAERS Safety Report 8202235-9 (Version None)
Quarter: 2012Q1

REPORT INFORMATION
  Report Type: 
  Country: None (occurrence: None)
  Receive Date: 20120312
  Receipt Date: 20120306
  Transmission Date: 20120608
  Serious: Yes (Other)
  Sender: FDA-Public Use
  Company Number: US-BAYER-2011-106130

PATIENT
  Age: 64 Year
  Sex: Male

DRUGS (2)
  1. AVELOX [Suspect]
     Indication: RESPIRATORY TRACT INFECTION
     Dosage: WITHIN THE LAST 2 WEEKS
     Route: 048
     Dates: start: 20110901
  2. SYNTHROID [Concomitant]
     Indication: HYPOTHYROIDISM

REACTIONS (8)
  - EYE SWELLING [None]
  - DYSPNOEA [None]
  - NAUSEA [None]
  - VOMITING [None]
  - COUGH [None]
  - PRURITUS [None]
  - ANAPHYLACTIC REACTION [None]
  - URTICARIA [None]
